FAERS Safety Report 10063640 (Version 2)
Quarter: 2014Q2

REPORT INFORMATION
  Report Type: Spontaneous
  Country: JP (occurrence: JP)
  Receive Date: 20140407
  Receipt Date: 20140409
  Transmission Date: 20141212
  Serious: Yes (Other)
  Sender: FDA-Public Use
  Company Number: PHHY2014JP041655

PATIENT
  Age: 40 Year
  Sex: Female

DRUGS (5)
  1. CICLOSPORIN [Suspect]
     Indication: RENAL TRANSPLANT
     Route: 048
  2. MYCOPHENOLATE MOFETIL [Suspect]
     Indication: RENAL TRANSPLANT
  3. OMEPRAZOLE [Suspect]
  4. SULFAMETHOXAZOLE, TRIMETHOPRIM [Suspect]
     Route: 048
  5. FEBUXOSTAT [Suspect]
     Route: 048

REACTIONS (6)
  - Polyomavirus-associated nephropathy [Recovering/Resolving]
  - Lymphocytic infiltration [Unknown]
  - Renal impairment [Recovering/Resolving]
  - Blood creatinine increased [Recovering/Resolving]
  - White blood cell count decreased [Recovering/Resolving]
  - Tubulointerstitial nephritis [Recovering/Resolving]
